FAERS Safety Report 7364985 (Version 4)
Quarter: 2016Q3

REPORT INFORMATION
  Report Type: Report from Study
  Country: US (occurrence: US)
  Receive Date: 20100423
  Receipt Date: 20160916
  Transmission Date: 20161109
  Serious: Yes (Death, Hospitalization, Other)
  Sender: FDA-Public Use
  Company Number: US-ROCHE-698743

PATIENT
  Age: 65 Year
  Sex: Male
  Weight: 93.2 kg

DRUGS (2)
  1. TEMSIROLIMUS [Suspect]
     Active Substance: TEMSIROLIMUS
     Indication: HEPATOCELLULAR CARCINOMA
     Dosage: LAST ADMINISTERED DATE: 24 MARCH 2010, ON DAYS 1, 8, 15 AND 22. CYCLE: 28 DAYS
     Route: 042
  2. BEVACIZUMAB [Suspect]
     Active Substance: BEVACIZUMAB
     Indication: HEPATOCELLULAR CARCINOMA
     Dosage: LAST ADMINISTERED DATE: 24 MARCH 2010OVER 30- 90 MINUTES ON DAYS 1 AND 15. CYCLE: 28 DAYS
     Route: 042

REACTIONS (9)
  - Renal failure [Unknown]
  - Respiratory failure [Unknown]
  - Nausea [Unknown]
  - Abdominal pain [Unknown]
  - Peritonitis [Unknown]
  - Metabolic acidosis [Unknown]
  - Multiple organ dysfunction syndrome [Unknown]
  - Acute kidney injury [Unknown]
  - Multiple organ dysfunction syndrome [Fatal]

NARRATIVE: CASE EVENT DATE: 20100331
